FAERS Safety Report 10408728 (Version 2)
Quarter: 2014Q3

REPORT INFORMATION
  Report Type: Spontaneous
  Country: US (occurrence: US)
  Receive Date: 20140826
  Receipt Date: 20140924
  Transmission Date: 20150326
  Serious: Yes (Other)
  Sender: FDA-Public Use
  Company Number: US-JNJFOC-20140813177

PATIENT

DRUGS (9)
  1. IFOSFAMIDE. [Suspect]
     Active Substance: IFOSFAMIDE
     Indication: LYMPHOMA
     Dosage: 4000 MG/M2 -17500 MG/M2, MEAN VALUE OF 9000 MG/M2
     Route: 065
  2. IFOSFAMIDE. [Suspect]
     Active Substance: IFOSFAMIDE
     Indication: LEUKAEMIA
     Dosage: 4000 MG/M2 -17500 MG/M2, MEAN VALUE OF 9000 MG/M2
     Route: 065
  3. DOXORUBICIN [Suspect]
     Active Substance: DOXORUBICIN
     Indication: NEOPLASM
     Dosage: 25 MG/M2 -120 MG/M2, MEAN VALUE OF 60 MG/M2
     Route: 042
  4. CISPLATIN. [Suspect]
     Active Substance: CISPLATIN
     Indication: LYMPHOMA
     Dosage: 75 MG/M2 -200 MG/M2, MEAN VALUE OF 100 MG/M2
     Route: 065
  5. DOXORUBICIN [Suspect]
     Active Substance: DOXORUBICIN
     Indication: LEUKAEMIA
     Dosage: 25 MG/M2 -120 MG/M2, MEAN VALUE OF 60 MG/M2
     Route: 042
  6. DOXORUBICIN [Suspect]
     Active Substance: DOXORUBICIN
     Indication: LYMPHOMA
     Dosage: 25 MG/M2 -120 MG/M2, MEAN VALUE OF 60 MG/M2
     Route: 042
  7. IFOSFAMIDE. [Suspect]
     Active Substance: IFOSFAMIDE
     Indication: NEOPLASM
     Dosage: 4000 MG/M2 -17500 MG/M2, MEAN VALUE OF 9000 MG/M2
     Route: 065
  8. CISPLATIN. [Suspect]
     Active Substance: CISPLATIN
     Indication: NEOPLASM
     Dosage: 75 MG/M2 -200 MG/M2, MEAN VALUE OF 100 MG/M2
     Route: 065
  9. CISPLATIN. [Suspect]
     Active Substance: CISPLATIN
     Indication: LEUKAEMIA
     Dosage: 75 MG/M2 -200 MG/M2, MEAN VALUE OF 100 MG/M2
     Route: 065

REACTIONS (8)
  - Nausea [Unknown]
  - Depression [Unknown]
  - Sleep disorder [Unknown]
  - Vomiting [Unknown]
  - Fatigue [Unknown]
  - Off label use [Unknown]
  - Abnormal behaviour [Unknown]
  - Performance status decreased [Unknown]
